FAERS Safety Report 11093476 (Version 1)
Quarter: 2015Q2

REPORT INFORMATION
  Report Type: Spontaneous
  Country: CN (occurrence: None)
  Receive Date: 20150504
  Receipt Date: 20150504
  Transmission Date: 20150821
  Serious: Yes (Death)
  Sender: FDA-Public Use
  Company Number: CN2015GSK046472

PATIENT

DRUGS (1)
  1. ZINACEF [Suspect]
     Active Substance: CEFUROXIME SODIUM
     Indication: PRODUCT USED FOR UNKNOWN INDICATION

REACTIONS (2)
  - Loss of consciousness [None]
  - Apnoea [None]
